FAERS Safety Report 15728605 (Version 2)
Quarter: 2019Q2

REPORT INFORMATION
  Report Type: Spontaneous
  Country: US (occurrence: US)
  Receive Date: 20181217
  Receipt Date: 20190516
  Transmission Date: 20190711
  Serious: No
  Sender: FDA-Public Use
  Company Number: US-PFIZER INC-2018515594

PATIENT
  Age: 50 Year
  Sex: Female

DRUGS (1)
  1. GENOTROPIN MQ [Suspect]
     Active Substance: SOMATROPIN
     Indication: GROWTH HORMONE DEFICIENCY
     Dosage: 0.6 MG, 6 DAYS A WEEK
     Dates: start: 20120314

REACTIONS (8)
  - Pain [Unknown]
  - Peripheral swelling [Unknown]
  - Sex hormone binding globulin increased [Unknown]
  - Sleep disorder [Unknown]
  - Condition aggravated [Unknown]
  - Blood thyroid stimulating hormone decreased [Unknown]
  - Insulin-like growth factor increased [Unknown]
  - Blood 25-hydroxycholecalciferol increased [Unknown]

NARRATIVE: CASE EVENT DATE: 20181018
